FAERS Safety Report 7105787-5 (Version None)
Quarter: 2010Q4

REPORT INFORMATION
  Report Type: 
  Country: None (occurrence: None)
  Receive Date: 20101110
  Receipt Date: 20101027
  Transmission Date: 20110411
  Serious: Yes (Other)
  Sender: FDA-Public Use
  Company Number: TPA2010A05672

PATIENT
  Age: 77 Year
  Sex: Female

DRUGS (3)
  1. ADENURIC (FEBUXOSTAT) [Suspect]
     Indication: HYPERURICAEMIA
     Dosage: PER ORAL
     Route: 048
     Dates: start: 20101001
  2. COLCHIMAX (COLCHICINE, TIEMONIUM METHYLSULFATE, PAPAVER SOMNIFERUM POW [Suspect]
     Indication: GOUT
  3. CELECTOL (CELIPROLOL HYDROCHLORIDE) [Concomitant]

REACTIONS (1)
  - LEUKAEMIA [None]
